FAERS Safety Report 9252117 (Version 1)
Quarter: 2013Q2

REPORT INFORMATION
  Report Type: Spontaneous
  Country: TR (occurrence: TR)
  Receive Date: 20130424
  Receipt Date: 20130424
  Transmission Date: 20140414
  Serious: Yes (Death, Other)
  Sender: FDA-Public Use
  Company Number: PHHY2013TR039218

PATIENT
  Age: 28 Year
  Sex: 0

DRUGS (3)
  1. HEPARIN [Suspect]
  2. TISSUE PLASMINOGEN ACTIVATOR, RECOMBINATIVE [Concomitant]
     Dosage: 25 MG, UNK
  3. TISSUE PLASMINOGEN ACTIVATOR, RECOMBINATIVE [Concomitant]
     Dosage: 150 MG, UNK

REACTIONS (5)
  - Multi-organ failure [Fatal]
  - Heparin-induced thrombocytopenia [Unknown]
  - Cerebral thrombosis [Unknown]
  - Cerebrovascular disorder [Unknown]
  - Intracardiac thrombus [Unknown]
